FAERS Safety Report 4402712-2 (Version None)
Quarter: 2004Q3

REPORT INFORMATION
  Report Type: 
  Country: None (occurrence: None)
  Receive Date: 20040721
  Receipt Date: 20040419
  Transmission Date: 20050211
  Serious: No
  Sender: FDA-Public Use
  Company Number: US-BRISTOL-MYERS SQUIBB COMPANY-12564118

PATIENT
  Age: 58 Year
  Sex: Male

DRUGS (5)
  1. DOVONEX [Suspect]
     Indication: PSORIASIS
     Dosage: QD FOR THREE DAYS THEN BID FOR THREE DAYS
     Route: 061
     Dates: start: 20040411, end: 20040416
  2. BEXTRA [Concomitant]
  3. AMBIEN [Concomitant]
  4. FLEXERIL [Concomitant]
  5. CRESTOR [Concomitant]

REACTIONS (1)
  - DERMATITIS CONTACT [None]
